FAERS Safety Report 17456228 (Version 1)
Quarter: 2020Q1

REPORT INFORMATION
  Report Type: Spontaneous
  Country: JP (occurrence: JP)
  Receive Date: 20200225
  Receipt Date: 20200225
  Transmission Date: 20200409
  Serious: Yes (Hospitalization)
  Sender: FDA-Public Use
  Company Number: JP-JNJFOC-20200232107

PATIENT
  Age: 84 Year
  Sex: Female
  Weight: 34.5 kg

DRUGS (9)
  1. RIVAROXABAN [Suspect]
     Active Substance: RIVAROXABAN
     Indication: ATRIAL FIBRILLATION
     Dosage: 1 DF, QD
     Route: 048
     Dates: end: 20191212
  2. ASPARA POTASSIUM [Concomitant]
     Active Substance: POTASSIUM ASPARTATE
     Dosage: 2 TABLETS, TWICE A DAY, IMMEDIATELY AFTER BREAKFAST AND DINNER
  3. FUROSEMIDE. [Concomitant]
     Active Substance: FUROSEMIDE
     Dosage: 1 DF, QD, IMMEDIATELY AFTER BREAKFAST
  4. BISOPROLOL FUMARATE. [Concomitant]
     Active Substance: BISOPROLOL FUMARATE
     Dosage: 1 DF, QD, IMMEDIATELY AFTER BREAKFAST
  5. RIVAROXABAN [Suspect]
     Active Substance: RIVAROXABAN
     Dosage: 1 DF, QD
     Route: 048
     Dates: start: 20191216
  6. EDIROL [Concomitant]
     Active Substance: ELDECALCITOL
     Dosage: 1 DF, QD, IMMEDIATELY AFTER BREAKFAST
  7. NICORANDIL [Concomitant]
     Active Substance: NICORANDIL
     Dosage: 1 DF, QD, IMMEDIATELY AFTER BREAKFAST
  8. NEXIUM [Concomitant]
     Active Substance: ESOMEPRAZOLE MAGNESIUM
     Dosage: 1 DF, QD, IMMEDIATELY AFTER BREAKFAST
  9. SPIRONOLACTONE. [Concomitant]
     Active Substance: SPIRONOLACTONE
     Dosage: 1 DF, QD, IMMEDIATELY AFTER BREAKFAST

REACTIONS (4)
  - Blood pressure decreased [Recovered/Resolved]
  - Enterocolitis [Recovering/Resolving]
  - Anaemia [Recovered/Resolved]
  - Abdominal pain lower [Unknown]

NARRATIVE: CASE EVENT DATE: 20191207
